FAERS Safety Report 7919130-2 (Version None)
Quarter: 2011Q4

REPORT INFORMATION
  Report Type: 
  Country: None (occurrence: None)
  Receive Date: 20111117
  Receipt Date: 20111031
  Transmission Date: 20120403
  Serious: Yes (Other)
  Sender: FDA-Public Use
  Company Number: US-ROCHE-1009747

PATIENT
  Sex: Male

DRUGS (8)
  1. XOLAIR [Suspect]
     Dates: start: 20091201
  2. XOLAIR [Suspect]
     Indication: ASTHMA
     Route: 058
     Dates: start: 20080115
  3. ALVESCO [Concomitant]
     Dosage: 2 PUFFS
  4. XOLAIR [Suspect]
     Route: 058
     Dates: start: 20100210
  5. XOLAIR [Suspect]
     Dates: start: 20091215
  6. ANTIBIOTICS (NOT SPECIFIED) [Concomitant]
  7. XOLAIR [Suspect]
     Route: 058
     Dates: start: 20090904
  8. VENTOLIN [Concomitant]

REACTIONS (10)
  - WHEEZING [None]
  - DYSPNOEA [None]
  - NASAL POLYPS [None]
  - BLOOD GLUCOSE INCREASED [None]
  - LUNG INFECTION [None]
  - PRODUCTIVE COUGH [None]
  - AURAL POLYP [None]
  - COUGH [None]
  - OROPHARYNGEAL PAIN [None]
  - OVERWEIGHT [None]
